FAERS Safety Report 10429232 (Version 1)
Quarter: 2014Q3

REPORT INFORMATION
  Report Type: Spontaneous
  Country: US (occurrence: None)
  Receive Date: 20140902
  Receipt Date: 20140902
  Transmission Date: 20150326
  Serious: No
  Sender: FDA-Public Use
  Company Number: None

PATIENT
  Age: 80 Year
  Sex: Female

DRUGS (15)
  1. ASPIRIN. [Concomitant]
     Active Substance: ASPIRIN
  2. METOPROLOL [Concomitant]
     Active Substance: METOPROLOL
  3. ESOMEPRAZOLE [Concomitant]
     Active Substance: ESOMEPRAZOLE
  4. FERROUS SULFATE [Concomitant]
     Active Substance: FERROUS SULFATE\FERROUS SULFATE, DRIED
  5. FUROSEMIDE. [Concomitant]
     Active Substance: FUROSEMIDE
  6. FLUOXETINE [Concomitant]
     Active Substance: FLUOXETINE\FLUOXETINE HYDROCHLORIDE
  7. CHOLECALCIFEROL [Concomitant]
     Active Substance: CHOLECALCIFEROL
  8. BIOTIN [Concomitant]
     Active Substance: BIOTIN
  9. POTASSIUM CHLORIDE. [Concomitant]
     Active Substance: POTASSIUM CHLORIDE
  10. VANCOMYCIN [Suspect]
     Active Substance: VANCOMYCIN
     Indication: INFECTION
     Route: 042
     Dates: start: 20140426, end: 20140506
  11. ASCORBIC ACID. [Concomitant]
     Active Substance: ASCORBIC ACID
  12. MULTIVITAMIN [Concomitant]
     Active Substance: VITAMINS
  13. ROPINIROLE. [Concomitant]
     Active Substance: ROPINIROLE
  14. CYANOCOBALAMIN. [Concomitant]
     Active Substance: CYANOCOBALAMIN
  15. PRAVASTATIN [Concomitant]
     Active Substance: PRAVASTATIN\PRAVASTATIN SODIUM

REACTIONS (2)
  - Blood creatinine increased [None]
  - Drug level increased [None]

NARRATIVE: CASE EVENT DATE: 20140506
